FAERS Safety Report 15290661 (Version 1)
Quarter: 2018Q3

REPORT INFORMATION
  Report Type: Spontaneous
  Country: GR (occurrence: GR)
  Receive Date: 20180817
  Receipt Date: 20180817
  Transmission Date: 20181010
  Serious: Yes (Other)
  Sender: FDA-Public Use
  Company Number: GR-SA-2018SA157237

PATIENT
  Age: 69 Year
  Sex: Female

DRUGS (10)
  1. TERIPARATIDE [Suspect]
     Active Substance: TERIPARATIDE
     Dosage: 20 UG, QD
     Dates: start: 20180427
  2. EUTHYROX [Concomitant]
     Active Substance: LEVOTHYROXINE SODIUM
     Indication: THYROID MASS
     Dosage: 1 DF, 6/W
  3. ZANTAC [Suspect]
     Active Substance: RANITIDINE HYDROCHLORIDE
     Dosage: 1 DF, QD
     Route: 048
  4. TERIPARATIDE [Suspect]
     Active Substance: TERIPARATIDE
     Indication: OSTEOPOROSIS
     Dosage: 20 UG, DAILY
     Route: 058
     Dates: start: 20180227
  5. LOSEC [Suspect]
     Active Substance: OMEPRAZOLE
     Indication: GASTRIC DISORDER
     Dosage: UNK UNK, QOD
     Route: 048
  6. CORTISONE [Concomitant]
     Active Substance: CORTISONE\HYDROCORTISONE
     Indication: RHEUMATOID ARTHRITIS
     Dosage: 1.5 TAB, DAILY
  7. METHOTREXATE. [Concomitant]
     Active Substance: METHOTREXATE
     Indication: RHEUMATOID ARTHRITIS
     Dosage: 2 TAB, IN MORNING AND NOON, WEEKLY (1/W)
  8. CALCIORAL D3 [Concomitant]
     Indication: OSTEOPOROSIS
     Dosage: UNK AFTERNOON, DAILY
  9. MODURETIC 5?50 [Suspect]
     Active Substance: AMILORIDE HYDROCHLORIDE\HYDROCHLOROTHIAZIDE
     Indication: HYPERTENSION
     Dosage: HALF TAB, EACH MORNING
     Route: 048
  10. APROVEL [Concomitant]
     Active Substance: IRBESARTAN
     Indication: HYPERTENSION
     Dosage: HALF TAB, EACH EVENING

REACTIONS (9)
  - Drug dose omission [Unknown]
  - Musculoskeletal pain [Recovered/Resolved]
  - Blood pressure systolic increased [Recovered/Resolved]
  - Blood pressure decreased [Not Recovered/Not Resolved]
  - Dizziness [Unknown]
  - Gastric polyps [Not Recovered/Not Resolved]
  - Oesophageal pain [Recovered/Resolved]
  - Heart rate increased [Recovered/Resolved]
  - Gastritis [Not Recovered/Not Resolved]

NARRATIVE: CASE EVENT DATE: 20180424
